FAERS Safety Report 7533519-5 (Version None)
Quarter: 2011Q2

REPORT INFORMATION
  Report Type: 
  Country: None (occurrence: None)
  Receive Date: 20110608
  Receipt Date: 20060131
  Transmission Date: 20111010
  Serious: Yes (Other)
  Sender: FDA-Public Use
  Company Number: PHFR2006IE00718

PATIENT
  Sex: Male

DRUGS (1)
  1. CLOZAPINE [Suspect]
     Indication: SCHIZOPHRENIA
     Route: 048
     Dates: start: 20000502

REACTIONS (4)
  - FLUID INTAKE REDUCED [None]
  - BODY TEMPERATURE INCREASED [None]
  - BLOOD POTASSIUM DECREASED [None]
  - EATING DISORDER [None]
